FAERS Safety Report 7072836-2 (Version None)
Quarter: 2010Q4

REPORT INFORMATION
  Report Type: 
  Country: None (occurrence: None)
  Receive Date: 20101029
  Receipt Date: 20100318
  Transmission Date: 20110411
  Serious: No
  Sender: FDA-Public Use
  Company Number: A0850880A

PATIENT
  Sex: Male

DRUGS (2)
  1. ADVAIR DISKUS 100/50 [Suspect]
     Indication: WHEEZING
     Dosage: 1PUFF TWICE PER DAY
     Route: 055
     Dates: start: 20100308
  2. VENTOLIN HFA [Concomitant]

REACTIONS (4)
  - ACCIDENTAL OVERDOSE [None]
  - CHEST DISCOMFORT [None]
  - DRY THROAT [None]
  - LARYNGITIS [None]
